FAERS Safety Report 6097206-5 (Version None)
Quarter: 2009Q1

REPORT INFORMATION
  Report Type: 
  Country: None (occurrence: None)
  Receive Date: 20090227
  Receipt Date: 20090218
  Transmission Date: 20090719
  Serious: Yes (Hospitalization)
  Sender: FDA-Public Use
  Company Number: B0554805A

PATIENT
  Age: 65 Year
  Sex: Male

DRUGS (8)
  1. ZOPHREN [Suspect]
     Indication: PROPHYLAXIS
     Route: 048
     Dates: start: 20081101, end: 20081101
  2. CARBOPLATIN [Suspect]
     Route: 042
     Dates: start: 20081124, end: 20081126
  3. ETOPOSIDE [Suspect]
     Route: 042
     Dates: start: 20081124, end: 20081126
  4. EMEND [Suspect]
     Indication: PROPHYLAXIS
     Route: 048
     Dates: start: 20081101, end: 20081101
  5. GRANOCYTE [Suspect]
     Indication: PROPHYLAXIS
     Route: 042
     Dates: start: 20081101, end: 20081101
  6. NATURAL MEDICATION [Concomitant]
  7. PHYTOTHERAPY [Concomitant]
  8. CORTICOIDS [Concomitant]

REACTIONS (5)
  - BLOOD ALKALINE PHOSPHATASE INCREASED [None]
  - CHOLESTASIS [None]
  - GAMMA-GLUTAMYLTRANSFERASE INCREASED [None]
  - LIPASE INCREASED [None]
  - TRANSAMINASES INCREASED [None]
